FAERS Safety Report 13289464 (Version 1)
Quarter: 2017Q1

REPORT INFORMATION
  Report Type: Spontaneous
  Country: CN (occurrence: CN)
  Receive Date: 20170303
  Receipt Date: 20170303
  Transmission Date: 20170428
  Serious: Yes (Other)
  Sender: FDA-Public Use
  Company Number: CN-ROCHE-1899888

PATIENT
  Age: 2 Month
  Sex: Male
  Weight: 4.4 kg

DRUGS (4)
  1. ROCEPHIN [Suspect]
     Active Substance: CEFTRIAXONE SODIUM
     Indication: ENTERITIS INFECTIOUS
  2. MEROPENEM. [Suspect]
     Active Substance: MEROPENEM
     Indication: ENTERITIS INFECTIOUS
  3. ROCEPHIN [Suspect]
     Active Substance: CEFTRIAXONE SODIUM
     Indication: UPPER RESPIRATORY TRACT INFECTION
     Dosage: ROUTE: PUMP INJECTION
     Route: 041
     Dates: start: 20160826, end: 20160829
  4. MEROPENEM. [Suspect]
     Active Substance: MEROPENEM
     Indication: UPPER RESPIRATORY TRACT INFECTION
     Dosage: ROUTE: PUMP INJECTION
     Route: 065
     Dates: start: 20160829, end: 20160904

REACTIONS (1)
  - Drug-induced liver injury [Unknown]

NARRATIVE: CASE EVENT DATE: 20160901
